FAERS Safety Report 7091676-1 (Version None)
Quarter: 2010Q4

REPORT INFORMATION
  Report Type: 
  Country: None (occurrence: None)
  Receive Date: 20101109
  Receipt Date: 20090624
  Transmission Date: 20110411
  Serious: No
  Sender: FDA-Public Use
  Company Number: US-KINGPHARMUSA00001-K200900746

PATIENT
  Sex: Female
  Weight: 102.4 kg

DRUGS (10)
  1. FLECTOR [Suspect]
     Indication: BACK PAIN
     Dosage: 1 PATCH, QD
     Route: 048
     Dates: start: 20090624
  2. VOLTAREN [Suspect]
     Indication: BACK PAIN
     Dosage: 75 MG, BID
     Route: 048
  3. NORVASC [Concomitant]
     Indication: BLOOD PRESSURE
     Dosage: 10 MG, QD
     Route: 048
  4. DETROL [Concomitant]
     Indication: DIURETIC THERAPY
     Dosage: 4 MG, QD
     Route: 048
  5. CAPTOPRIL [Concomitant]
     Indication: BLOOD PRESSURE
     Dosage: 20/25 MG, QD,
     Route: 048
  6. SALMON OIL [Concomitant]
     Indication: SUPPLEMENTATION THERAPY
     Dosage: UNK
     Route: 048
  7. CALCIUM [Concomitant]
     Indication: SUPPLEMENTATION THERAPY
     Dosage: UNK
     Route: 048
  8. MULTI-VITAMIN [Concomitant]
     Indication: SUPPLEMENTATION THERAPY
     Dosage: UNK
     Route: 048
  9. VITAMIN D [Concomitant]
     Indication: SUPPLEMENTATION THERAPY
     Dosage: UNK
  10. UNSPECIFIED HERBAL [Concomitant]
     Indication: CELLULITIS
     Dosage: UNK

REACTIONS (2)
  - DYSGEUSIA [None]
  - HEADACHE [None]
